FAERS Safety Report 19128681 (Version 1)
Quarter: 2021Q2

REPORT INFORMATION
  Report Type: Spontaneous
  Country: US (occurrence: US)
  Receive Date: 20210413
  Receipt Date: 20210413
  Transmission Date: 20210717
  Serious: No
  Sender: FDA-Public Use
  Company Number: US-ALLERGAN-2043894US

PATIENT
  Age: 62 Year
  Sex: Female

DRUGS (3)
  1. LOSARTAN. [Concomitant]
     Active Substance: LOSARTAN
     Indication: HYPERTENSION
     Dosage: 100 MG
  2. LATISSE [Suspect]
     Active Substance: BIMATOPROST
     Indication: GROWTH OF EYELASHES
     Dosage: 2 GTT, QPM
     Route: 061
     Dates: start: 202010, end: 202010
  3. RALOXIFENE. [Concomitant]
     Active Substance: RALOXIFENE
     Indication: BONE DISORDER

REACTIONS (6)
  - Dry skin [Recovering/Resolving]
  - Eyelid thickening [Recovering/Resolving]
  - Product administered at inappropriate site [Unknown]
  - Swelling of eyelid [Recovered/Resolved]
  - Urticaria [Recovering/Resolving]
  - Eyelid skin dryness [Recovering/Resolving]
